FAERS Safety Report 21842424 (Version 1)
Quarter: 2023Q1

REPORT INFORMATION
  Report Type: Report from Study
  Country: BR (occurrence: BR)
  Receive Date: 20230110
  Receipt Date: 20230110
  Transmission Date: 20230418
  Serious: Yes (Hospitalization)
  Sender: FDA-Public Use
  Company Number: BR-002147023-NVSC2023BR003968

PATIENT
  Age: 83 Year
  Sex: Female

DRUGS (1)
  1. TRAVATAN [Suspect]
     Active Substance: TRAVOPROST
     Indication: Product used for unknown indication
     Dosage: UNK (MANY YEARS AGO)
     Route: 065

REACTIONS (3)
  - Fall [Unknown]
  - Fractured sacrum [Unknown]
  - Thrombosis [Unknown]
